FAERS Safety Report 17889315 (Version 3)
Quarter: 2020Q2

REPORT INFORMATION
  Report Type: Spontaneous
  Country: DE (occurrence: DE)
  Receive Date: 20200612
  Receipt Date: 20200624
  Transmission Date: 20200714
  Serious: Yes (Congenital Anomaly)
  Sender: FDA-Public Use
  Company Number: NVSC2020DE160930

PATIENT
  Age: 1 Day
  Sex: Male
  Weight: 4.08 kg

DRUGS (10)
  1. LEVOCETIRIZINE [Concomitant]
     Active Substance: LEVOCETIRIZINE
     Indication: SEASONAL ALLERGY
     Dosage: 5 MG, QD/ONLY TWO TO THREE TIMES DURING THE ENTIRE PREGNANCY
     Route: 064
     Dates: start: 20180706, end: 20190308
  2. L-THYROXINE [Concomitant]
     Active Substance: LEVOTHYROXINE
     Indication: HYPOTHYROIDISM
     Dosage: 50 MG, QD
     Route: 064
     Dates: start: 20180706, end: 20190308
  3. METOPROLOL. [Suspect]
     Active Substance: METOPROLOL
     Indication: SINUS TACHYCARDIA
     Dosage: MATERNAL DOSE-23.75 MG, QD (7.6. - 35. GESTATIONAL WEEK)
     Route: 064
     Dates: start: 20180830, end: 20190308
  4. BISOPROLOL [Suspect]
     Active Substance: BISOPROLOL
     Indication: SINUS TACHYCARDIA
     Dosage: 10 MG, QD
     Route: 064
     Dates: start: 20180706, end: 20180829
  5. FOLIC ACID. [Concomitant]
     Active Substance: FOLIC ACID
     Indication: PROPHYLAXIS OF NEURAL TUBE DEFECT
     Dosage: 0.8 MG, QD
     Route: 064
     Dates: start: 20180706, end: 20190308
  6. PROCORALAN [Suspect]
     Active Substance: IVABRADINE
     Dosage: 15 MG, QD  (2 X 7.5 MG/D) 2 SEPARATED DOSES
     Route: 064
     Dates: start: 20180706, end: 20180829
  7. BETAMETHASONE. [Concomitant]
     Active Substance: BETAMETHASONE
     Dosage: PROBABLY PERIPARTAL
     Route: 064
  8. PROCORALAN [Suspect]
     Active Substance: IVABRADINE
     Indication: SINUS TACHYCARDIA
     Dosage: MATERANL DOSE-15 [MG/D (2 X 7.5 MG/D) ] 2 SEPARATED DOSES (0. - 7.5. GESTATIONAL WEEK)
     Route: 064
     Dates: start: 20180706, end: 20180829
  9. BETAMETHASONE. [Concomitant]
     Active Substance: BETAMETHASONE
     Indication: MATERNAL THERAPY TO ENHANCE FOETAL LUNG MATURITY
     Dosage: MATERNAL DOSE-PROBABLY PERIPARTAL
     Route: 064
  10. VALPROAT [Concomitant]
     Active Substance: VALPROATE SODIUM
     Indication: EPILEPSY
     Dosage: 1500 MG
     Route: 065
     Dates: start: 20180706, end: 20190308

REACTIONS (6)
  - Atrial septal defect [Recovered/Resolved]
  - Large for dates baby [Unknown]
  - Congenital choroid plexus cyst [Unknown]
  - Respiratory disorder neonatal [Recovered/Resolved]
  - Cleft palate [Not Recovered/Not Resolved]
  - Foetal exposure during pregnancy [Recovered/Resolved with Sequelae]

NARRATIVE: CASE EVENT DATE: 2018
